FAERS Safety Report 7368269-1 (Version None)
Quarter: 2011Q1

REPORT INFORMATION
  Report Type: 
  Country: None (occurrence: None)
  Receive Date: 20110323
  Receipt Date: 20091122
  Transmission Date: 20110831
  Serious: Yes (Death, Other)
  Sender: FDA-Public Use
  Company Number: US-BAYER-201041941NA

PATIENT
  Sex: Female
  Weight: 83.9 kg

DRUGS (10)
  1. BETAMETHASONE VALERATE [Concomitant]
  2. CONTRAST MEDIA [Concomitant]
     Indication: CATHETERISATION CARDIAC
     Dosage: UNK
     Dates: start: 20060701
  3. TRASYLOL [Suspect]
     Indication: CORONARY ARTERY BYPASS
     Dosage: UNK
     Route: 042
     Dates: start: 20060717
  4. TORSEMIDE [Concomitant]
     Dosage: 20 MG, UNK
     Route: 048
  5. ACETAMINOPHEN AND HYDROCODONE BITARTRATE [Concomitant]
     Dosage: 0.5-750
     Route: 048
  6. ZOCOR [Concomitant]
  7. IPRATROPIUM BROMIDE [Concomitant]
     Route: 055
  8. ALBUTEROL [Concomitant]
     Dosage: NEBULIZER
     Route: 055
  9. ISOSORBIDE MONONITRATE [Concomitant]
     Dosage: 60 MG, UNK
     Route: 048
  10. VERAPAMIL [Concomitant]
     Dosage: 240 MG, UNK
     Route: 048

REACTIONS (13)
  - PAIN [None]
  - RENAL FAILURE [None]
  - RENAL IMPAIRMENT [None]
  - MULTI-ORGAN FAILURE [None]
  - STRESS [None]
  - UNEVALUABLE EVENT [None]
  - INJURY [None]
  - AMNESIA [None]
  - ANXIETY [None]
  - FEAR [None]
  - DEATH [None]
  - RENAL INJURY [None]
  - EMOTIONAL DISTRESS [None]
